FAERS Safety Report 10753289 (Version 1)
Quarter: 2015Q1

REPORT INFORMATION
  Report Type: Spontaneous
  Country: GB (occurrence: GB)
  Receive Date: 20150130
  Receipt Date: 20150130
  Transmission Date: 20150721
  Serious: Yes (Disabling)
  Sender: FDA-Public Use
  Company Number: GB-ASTRAZENECA-2015SE07091

PATIENT
  Age: 73 Year
  Sex: Male

DRUGS (14)
  1. RANOLAZINE [Concomitant]
     Active Substance: RANOLAZINE
  2. TICAGRELOR [Suspect]
     Active Substance: TICAGRELOR
     Indication: ANGINA UNSTABLE
     Route: 048
     Dates: end: 20150108
  3. PREGABALIN. [Concomitant]
     Active Substance: PREGABALIN
  4. RANITIDINE [Concomitant]
     Active Substance: RANITIDINE\RANITIDINE HYDROCHLORIDE
  5. CLOPIDOGREL [Concomitant]
     Active Substance: CLOPIDOGREL BISULFATE
  6. DILTIAZEM [Concomitant]
     Active Substance: DILTIAZEM
  7. BUMETANIDE. [Concomitant]
     Active Substance: BUMETANIDE
  8. TICAGRELOR [Suspect]
     Active Substance: TICAGRELOR
     Indication: ANGINA UNSTABLE
     Route: 048
     Dates: start: 20150107
  9. ATORVASTATIN [Concomitant]
     Active Substance: ATORVASTATIN
  10. FINASTERIDE. [Concomitant]
     Active Substance: FINASTERIDE
  11. LEVOTHYROXINE [Concomitant]
     Active Substance: LEVOTHYROXINE
  12. GLICLAZIDE [Concomitant]
     Active Substance: GLICLAZIDE
  13. PERINDOPRIL [Concomitant]
     Active Substance: PERINDOPRIL
  14. WARFARIN [Concomitant]
     Active Substance: WARFARIN

REACTIONS (1)
  - Confusional state [Recovered/Resolved]

NARRATIVE: CASE EVENT DATE: 20150108
